FAERS Safety Report 20751333 (Version 2)
Quarter: 2022Q2

REPORT INFORMATION
  Report Type: Spontaneous
  Country: US (occurrence: US)
  Receive Date: 20220426
  Receipt Date: 20220427
  Transmission Date: 20220721
  Serious: No
  Sender: FDA-Public Use
  Company Number: US-PFIZER INC-202100967401

PATIENT
  Age: 48 Year
  Sex: Male
  Weight: 83.46 kg

DRUGS (1)
  1. LYRICA [Interacting]
     Active Substance: PREGABALIN
     Indication: Neuropathy peripheral
     Dosage: 300 MG, 2X/DAY
     Route: 048
     Dates: start: 2003, end: 2018

REACTIONS (2)
  - Drug ineffective [Unknown]
  - Food interaction [Unknown]
